FAERS Safety Report 8350362-8 (Version None)
Quarter: 2012Q2

REPORT INFORMATION
  Report Type: 
  Country: None (occurrence: None)
  Receive Date: 20120510
  Receipt Date: 20120425
  Transmission Date: 20120825
  Serious: Yes (Hospitalization)
  Sender: FDA-Public Use
  Company Number: FR-ROCHE-1063208

PATIENT
  Sex: Female

DRUGS (6)
  1. TAXOTERE [Concomitant]
     Indication: NEOPLASM MALIGNANT
     Route: 042
     Dates: start: 20090831, end: 20091015
  2. CYCLOPHOSPHAMIDE [Concomitant]
     Indication: NEOPLASM MALIGNANT
     Route: 042
     Dates: start: 20090625, end: 20090806
  3. AVASTIN [Suspect]
     Indication: BREAST CANCER
     Dosage: LAST DOSE PRIOR TO SAE 24/JUN/2010
     Route: 042
     Dates: start: 20090625, end: 20100624
  4. LEUPROLIDE ACETATE [Concomitant]
     Indication: INFERTILITY
     Dosage: PER OS
     Dates: start: 20110201, end: 20110501
  5. FLUOROURACIL [Concomitant]
     Indication: NEOPLASM MALIGNANT
     Route: 042
     Dates: start: 20090625, end: 20090806
  6. EPIRUBICIN HYDROCHLORIDE [Concomitant]
     Indication: NEOPLASM MALIGNANT
     Route: 042
     Dates: start: 20090625, end: 20090806

REACTIONS (2)
  - PREMATURE DELIVERY [None]
  - MATERNAL EXPOSURE DURING PREGNANCY [None]
